FAERS Safety Report 25142245 (Version 1)
Quarter: 2025Q1

REPORT INFORMATION
  Report Type: Spontaneous
  Country: US (occurrence: US)
  Receive Date: 20250331
  Receipt Date: 20250331
  Transmission Date: 20250409
  Serious: No
  Sender: PFIZER
  Company Number: US-PFIZER INC-202500067622

PATIENT
  Age: 66 Year
  Sex: Female
  Weight: 133.81 kg

DRUGS (9)
  1. XELJANZ XR [Suspect]
     Active Substance: TOFACITINIB CITRATE
     Indication: Rheumatoid arthritis
     Dosage: 11 MG, 1X/DAY
  2. METHOTREXATE SODIUM [Suspect]
     Active Substance: METHOTREXATE SODIUM
     Indication: Rheumatoid arthritis
  3. ADVIL [Suspect]
     Active Substance: IBUPROFEN
     Indication: Rheumatoid arthritis
  4. HYDROXYCHLOROQUINE SULFATE [Suspect]
     Active Substance: HYDROXYCHLOROQUINE SULFATE
     Indication: Rheumatoid arthritis
  5. IBUPROFEN [Suspect]
     Active Substance: IBUPROFEN
     Indication: Rheumatoid arthritis
  6. PRAMIPEXOLE DIHYDROCHLORIDE [Concomitant]
     Active Substance: PRAMIPEXOLE DIHYDROCHLORIDE
     Indication: Restless legs syndrome
     Dosage: UNK, 1X/DAY, (FROM 0.5 MILLIGRAMS TO ONE MILLIGRAMS A DAY)
  7. GABAPENTIN [Concomitant]
     Active Substance: GABAPENTIN
     Indication: Restless legs syndrome
     Dosage: 600 MG, 2X/DAY
  8. ROPINIROLE [Concomitant]
     Active Substance: ROPINIROLE
     Indication: Restless legs syndrome
  9. TRAMADOL [Concomitant]
     Active Substance: TRAMADOL
     Indication: Restless legs syndrome

REACTIONS (1)
  - Therapeutic product effect incomplete [Unknown]
